FAERS Safety Report 12492304 (Version 1)
Quarter: 2016Q2

REPORT INFORMATION
  Report Type: Spontaneous
  Country: None (occurrence: None)
  Receive Date: 20160622
  Receipt Date: 20160622
  Transmission Date: 20160815
  Serious: Yes (Hospitalization)
  Sender: FDA-Public Use
  Company Number: None

PATIENT
  Age: 46 Year
  Sex: Female
  Weight: 82.19 kg

DRUGS (13)
  1. CALCIUM CARBONATE. [Concomitant]
     Active Substance: CALCIUM CARBONATE
  2. ALEVE [Concomitant]
     Active Substance: NAPROXEN SODIUM
  3. NIVOLUMAB [Suspect]
     Active Substance: NIVOLUMAB
     Indication: BREAST CANCER
     Dosage: 3MG/KGQ
     Route: 042
  4. VITAMIN B12 [Concomitant]
     Active Substance: CYANOCOBALAMIN
  5. CYANOCOBALAMINE [Concomitant]
     Active Substance: CYANOCOBALAMIN
  6. MAGOXIDE [Concomitant]
  7. VITAMIN D [Concomitant]
     Active Substance: CHOLECALCIFEROL
  8. NEURONTIN [Concomitant]
     Active Substance: GABAPENTIN
  9. TYLENOL [Concomitant]
     Active Substance: ACETAMINOPHEN
  10. FISH OIL [Concomitant]
     Active Substance: FISH OIL
  11. MULTIVITAMIN [Concomitant]
     Active Substance: VITAMINS
  12. OXYCODONE [Concomitant]
     Active Substance: OXYCODONE
  13. FENTANYL TRANSDERMAL SYSTEM [Concomitant]
     Active Substance: FENTANYL

REACTIONS (5)
  - Hypomagnesaemia [None]
  - Dyspnoea [None]
  - Pleural effusion [None]
  - Malignant neoplasm progression [None]
  - Oxygen saturation decreased [None]

NARRATIVE: CASE EVENT DATE: 20160606
